FAERS Safety Report 6199629-2 (Version None)
Quarter: 2009Q2

REPORT INFORMATION
  Report Type: 
  Country: None (occurrence: None)
  Receive Date: 20090522
  Receipt Date: 20081209
  Transmission Date: 20091009
  Serious: No
  Sender: FDA-Public Use
  Company Number: A0756810A

PATIENT
  Age: 59 Year
  Sex: Male

DRUGS (5)
  1. BACTROBAN [Suspect]
     Indication: SKIN INFECTION
     Dosage: 1APP TWICE PER DAY
     Route: 061
     Dates: start: 20081030, end: 20081030
  2. CIPRO [Concomitant]
  3. LISINOPRIL [Concomitant]
  4. HYDROCHLOROTHIAZIDE [Concomitant]
  5. CLONAZEPAM [Concomitant]
     Dosage: .5MG AT NIGHT

REACTIONS (2)
  - PAIN [None]
  - SWELLING [None]
